FAERS Safety Report 19201790 (Version 2)
Quarter: 2021Q2

REPORT INFORMATION
  Report Type: Report from Study
  Country: CA (occurrence: CA)
  Receive Date: 20210430
  Receipt Date: 20210505
  Transmission Date: 20210717
  Serious: Yes (Hospitalization)
  Sender: FDA-Public Use
  Company Number: CA-EISAI MEDICAL RESEARCH-EC-2021-091954

PATIENT
  Age: 56 Year
  Sex: Female
  Weight: 96 kg

DRUGS (2)
  1. LENVIMA [Suspect]
     Active Substance: LENVATINIB
     Indication: ENDOMETRIAL CANCER
     Route: 048
     Dates: start: 20210212, end: 20210401
  2. LENVIMA [Suspect]
     Active Substance: LENVATINIB
     Route: 048
     Dates: start: 20210423

REACTIONS (3)
  - Pulmonary embolism [Unknown]
  - Pain in extremity [Unknown]
  - Sensory disturbance [Unknown]

NARRATIVE: CASE EVENT DATE: 202102
